FAERS Safety Report 16719730 (Version 1)
Quarter: 2019Q3

REPORT INFORMATION
  Report Type: Report from Study
  Country: TR (occurrence: TR)
  Receive Date: 20190820
  Receipt Date: 20190820
  Transmission Date: 20191005
  Serious: Yes (Hospitalization)
  Sender: FDA-Public Use
  Company Number: TR-ROCHE-2385336

PATIENT
  Age: 38 Year
  Sex: Female
  Weight: 60 kg

DRUGS (6)
  1. CAUPHE [Concomitant]
     Route: 042
     Dates: start: 20190701
  2. OCRELIZUMAB. [Suspect]
     Active Substance: OCRELIZUMAB
     Indication: MULTIPLE SCLEROSIS
     Dosage: DATE OF MOST RECENT DOSE OF OCRELIZUMAB PRIOR TO SAE ONSET: 01/JUL/2019
     Route: 042
     Dates: start: 20190617
  3. DEXOJECT [Concomitant]
     Indication: PREMEDICATION
     Dosage: SUBSEQUENT DOSE ON: 01/JUL/2019
     Route: 042
     Dates: start: 20190617
  4. OCRELIZUMAB. [Suspect]
     Active Substance: OCRELIZUMAB
     Route: 042
  5. FAMPYRA [Concomitant]
     Active Substance: DALFAMPRIDINE
     Route: 048
     Dates: start: 201806
  6. AVIJECT [Concomitant]
     Route: 042
     Dates: start: 20190617

REACTIONS (1)
  - Urinary tract infection [Recovered/Resolved]

NARRATIVE: CASE EVENT DATE: 20190813
